FAERS Safety Report 7042424-2 (Version None)
Quarter: 2010Q4

REPORT INFORMATION
  Report Type: 
  Country: None (occurrence: None)
  Receive Date: 20101013
  Receipt Date: 20100604
  Transmission Date: 20110411
  Serious: No
  Sender: FDA-Public Use
  Company Number: US-ASTRAZENECA-2010SE16339

PATIENT
  Age: 67 Year
  Sex: Female
  Weight: 68 kg

DRUGS (6)
  1. SYMBICORT [Suspect]
     Indication: ASTHMA
     Dosage: 160/4.5, 2 PUFFS TWICE DAILY
     Route: 055
     Dates: start: 20080101
  2. NEXIUM [Suspect]
     Route: 048
  3. OMEPRAZOLE [Suspect]
     Route: 048
  4. ALLERGY PILL - OTC [Concomitant]
  5. PERCOCET [Concomitant]
  6. PAIN MEDICINE [Concomitant]

REACTIONS (5)
  - COUGH [None]
  - DYSPNOEA [None]
  - NASAL CONGESTION [None]
  - RASH [None]
  - SINUSITIS [None]
